FAERS Safety Report 11604500 (Version 3)
Quarter: 2015Q4

REPORT INFORMATION
  Report Type: Spontaneous
  Country: US (occurrence: US)
  Receive Date: 20151007
  Receipt Date: 20151028
  Transmission Date: 20160304
  Serious: Yes (Death, Other)
  Sender: FDA-Public Use
  Company Number: US-PFIZER INC-2015320526

PATIENT
  Age: 74 Year
  Sex: Female

DRUGS (1)
  1. SUTENT [Suspect]
     Active Substance: SUNITINIB MALATE
     Indication: METASTATIC RENAL CELL CARCINOMA
     Dosage: UNK, 1X/DAY

REACTIONS (6)
  - Pain [Unknown]
  - Dysphagia [Unknown]
  - Renal failure [Fatal]
  - Hepatic failure [Fatal]
  - Disease progression [Unknown]
  - Metastatic renal cell carcinoma [Unknown]
